FAERS Safety Report 9307992 (Version 12)
Quarter: 2015Q1

REPORT INFORMATION
  Report Type: Report from Study
  Country: CA (occurrence: CA)
  Receive Date: 20130524
  Receipt Date: 20150227
  Transmission Date: 20150721
  Serious: Yes (Hospitalization, Other)
  Sender: FDA-Public Use
  Company Number: CA-ROCHE-1222704

PATIENT
  Age: 41 Year
  Sex: Female
  Weight: 78 kg

DRUGS (20)
  1. AVASTIN [Suspect]
     Active Substance: BEVACIZUMAB
     Route: 042
     Dates: start: 20131022
  2. NOVOQUININE [Concomitant]
  3. CYMBALTA [Concomitant]
     Active Substance: DULOXETINE HYDROCHLORIDE
  4. AVASTIN [Suspect]
     Active Substance: BEVACIZUMAB
     Route: 042
     Dates: start: 20140218
  5. AVASTIN [Suspect]
     Active Substance: BEVACIZUMAB
     Route: 042
     Dates: start: 20141119
  6. VENTOLIN [Concomitant]
     Active Substance: ALBUTEROL SULFATE
  7. VENLAFAXINE [Concomitant]
     Active Substance: VENLAFAXINE HYDROCHLORIDE
  8. IRON DEXTRAN [Concomitant]
     Active Substance: IRON DEXTRAN
  9. GRAVOL [Concomitant]
     Active Substance: DIMENHYDRINATE
     Route: 065
  10. AVASTIN [Suspect]
     Active Substance: BEVACIZUMAB
     Indication: HEREDITARY HAEMORRHAGIC TELANGIECTASIA
     Route: 042
     Dates: start: 20130322
  11. TYLENOL [Concomitant]
     Active Substance: ACETAMINOPHEN
     Route: 065
  12. CIPROFLOXACIN. [Concomitant]
     Active Substance: CIPROFLOXACIN
  13. DEXAMETHASONE. [Concomitant]
     Active Substance: DEXAMETHASONE
  14. NORTRIPTYLINE [Concomitant]
     Active Substance: NORTRIPTYLINE
  15. IMODIUM [Concomitant]
     Active Substance: LOPERAMIDE HYDROCHLORIDE
  16. FLOVENT [Concomitant]
     Active Substance: FLUTICASONE PROPIONATE
  17. TEMAZEPAM. [Concomitant]
     Active Substance: TEMAZEPAM
  18. AVASTIN [Suspect]
     Active Substance: BEVACIZUMAB
     Indication: CHRONIC HEPATIC FAILURE
     Route: 042
     Dates: start: 20130405
  19. CLONAZEPAM. [Concomitant]
     Active Substance: CLONAZEPAM
  20. ESOMEPRAZOLE [Concomitant]
     Active Substance: ESOMEPRAZOLE

REACTIONS (14)
  - Asthma [Unknown]
  - Hypotension [Unknown]
  - Clostridium difficile infection [Recovered/Resolved]
  - Ear infection staphylococcal [Unknown]
  - Cystitis [Recovered/Resolved]
  - Cardiac valve disease [Not Recovered/Not Resolved]
  - Diarrhoea [Unknown]
  - Heart rate increased [Unknown]
  - Crying [Unknown]
  - Product use issue [Unknown]
  - Abdominal discomfort [Unknown]
  - Anxiety [Unknown]
  - Weight increased [Unknown]
  - Infusion related reaction [Unknown]

NARRATIVE: CASE EVENT DATE: 20130418
